FAERS Safety Report 4686739-1 (Version None)
Quarter: 2005Q2

REPORT INFORMATION
  Report Type: 
  Country: None (occurrence: None)
  Receive Date: 20050606
  Receipt Date: 20050523
  Transmission Date: 20051028
  Serious: Yes (Death)
  Sender: FDA-Public Use
  Company Number: MEDI-0002979

PATIENT
  Age: 3 Month
  Sex: Male

DRUGS (1)
  1. SYNAGIS [Suspect]
     Indication: ANTIVIRAL PROPHYLAXIS
     Dosage: 1 IN 30 D, INTRAMUSCULAR
     Route: 030
     Dates: start: 20041217, end: 20041217

REACTIONS (2)
  - CHILD MALTREATMENT SYNDROME [None]
  - CONTUSION [None]
